FAERS Safety Report 7893354-5 (Version None)
Quarter: 2011Q4

REPORT INFORMATION
  Report Type: 
  Country: None (occurrence: None)
  Receive Date: 20111104
  Receipt Date: 20111028
  Transmission Date: 20120403
  Serious: Yes (Other)
  Sender: FDA-Public Use
  Company Number: DK-PFIZER INC-2011265526

PATIENT
  Sex: Male

DRUGS (1)
  1. ZOLOFT [Suspect]
     Indication: DEPRESSION
     Dosage: 25 MG DAILY
     Route: 064
     Dates: start: 19990501

REACTIONS (2)
  - AUTISM [None]
  - MATERNAL EXPOSURE DURING PREGNANCY [None]
